FAERS Safety Report 13141779 (Version 4)
Quarter: 2017Q3

REPORT INFORMATION
  Report Type: Spontaneous
  Country: DE (occurrence: DE)
  Receive Date: 20170123
  Receipt Date: 20170714
  Transmission Date: 20171127
  Serious: Yes (Death, Other)
  Sender: FDA-Public Use
  Company Number: DE-GLAXOSMITHKLINE-DE2017GSK007967

PATIENT
  Age: 85 Year
  Sex: Female

DRUGS (12)
  1. MARCUMAR [Concomitant]
     Active Substance: PHENPROCOUMON
  2. SALBUTAMOL [Concomitant]
     Active Substance: ALBUTEROL
  3. HCT [Concomitant]
     Active Substance: HYDROCHLOROTHIAZIDE
  4. ALLOPURINOL. [Concomitant]
     Active Substance: ALLOPURINOL
  5. SPIRIVA [Concomitant]
     Active Substance: TIOTROPIUM BROMIDE MONOHYDRATE
  6. TOREM [Concomitant]
     Active Substance: TORSEMIDE
  7. RAMIPRIL. [Concomitant]
     Active Substance: RAMIPRIL
  8. DEKRISTOL [Concomitant]
     Active Substance: CHOLECALCIFEROL
  9. METRONIDAZOL [Concomitant]
     Active Substance: METRONIDAZOLE
     Indication: CHOLANGITIS
     Dosage: UNK
     Dates: start: 20161201, end: 20161205
  10. CEFUROXIME. [Suspect]
     Active Substance: CEFUROXIME
     Indication: RESPIRATORY TRACT INFECTION
     Dosage: 500 MG, BID
     Route: 048
     Dates: start: 20161125, end: 20161127
  11. CEFTRIAXON [Concomitant]
     Active Substance: CEFTRIAXONE
     Indication: CHOLANGITIS
     Dosage: UNK
     Dates: start: 20161201, end: 20161205
  12. MEMANTINE. [Concomitant]
     Active Substance: MEMANTINE

REACTIONS (2)
  - Hepatic enzyme increased [Fatal]
  - Hepatic failure [Fatal]

NARRATIVE: CASE EVENT DATE: 20161127
